FAERS Safety Report 5824539-7 (Version None)
Quarter: 2008Q3

REPORT INFORMATION
  Report Type: 
  Country: None (occurrence: None)
  Receive Date: 20080728
  Receipt Date: 20080715
  Transmission Date: 20090109
  Serious: Yes (Other)
  Sender: FDA-Public Use
  Company Number: GR-ROCHE-576224

PATIENT
  Age: 28 Year
  Sex: Male

DRUGS (2)
  1. XELODA [Suspect]
     Indication: COLON CANCER
     Dosage: DOSAGE REGIMEN: 3150 MG/ 24 HOURS.
     Route: 065
     Dates: start: 20080519
  2. ELOXATIN [Concomitant]
     Indication: COLON CANCER

REACTIONS (5)
  - BLOOD AMYLASE INCREASED [None]
  - BLOOD BILIRUBIN INCREASED [None]
  - BLOOD TRIGLYCERIDES INCREASED [None]
  - HEPATIC ENZYME INCREASED [None]
  - URINE AMYLASE INCREASED [None]
